FAERS Safety Report 25866102 (Version 1)
Quarter: 2025Q3

REPORT INFORMATION
  Report Type: Spontaneous
  Country: CN (occurrence: CN)
  Receive Date: 20250930
  Receipt Date: 20250930
  Transmission Date: 20251021
  Serious: Yes (Other)
  Sender: ALEXION PHARMACEUTICALS
  Company Number: CN-ASTRAZENECA-202509GLO025935CN

PATIENT
  Age: 64 Year
  Sex: Female

DRUGS (7)
  1. OSIMERTINIB [Suspect]
     Active Substance: OSIMERTINIB
     Indication: Lung adenocarcinoma
     Dosage: 80 MILLIGRAM, QD
     Dates: start: 202203
  2. OSIMERTINIB [Suspect]
     Active Substance: OSIMERTINIB
     Route: 065
  3. AFATINIB [Concomitant]
     Active Substance: AFATINIB
  4. CISPLATIN [Concomitant]
     Active Substance: CISPLATIN
  5. PACLITAXEL [Concomitant]
     Active Substance: PACLITAXEL
  6. PEMETREXED [Concomitant]
     Active Substance: PEMETREXED
  7. BEVACIZUMAB [Concomitant]
     Active Substance: BEVACIZUMAB

REACTIONS (2)
  - Malignant neoplasm progression [Unknown]
  - Acquired gene mutation [Unknown]
